FAERS Safety Report 6229985-8 (Version None)
Quarter: 2009Q2

REPORT INFORMATION
  Report Type: 
  Country: None (occurrence: None)
  Receive Date: 20090615
  Receipt Date: 20090609
  Transmission Date: 20091009
  Serious: Yes (Other)
  Sender: FDA-Public Use
  Company Number: US-AVENTIS-200915096US

PATIENT
  Age: 75 Year
  Sex: Male
  Weight: 131.8 kg

DRUGS (2)
  1. AMARYL [Suspect]
     Dosage: DOSE: UNK
     Dates: end: 20090501
  2. METFORMIN HYDROCHLORIDE [Suspect]
     Dosage: DOSE: UNK
     Dates: end: 20090501

REACTIONS (3)
  - ACIDOSIS [None]
  - BLOOD BICARBONATE DECREASED [None]
  - BLOOD GLUCOSE INCREASED [None]
